FAERS Safety Report 4706274-1 (Version None)
Quarter: 2005Q2

REPORT INFORMATION
  Report Type: 
  Country: None (occurrence: None)
  Receive Date: 20050629
  Receipt Date: 20050621
  Transmission Date: 20051028
  Serious: Yes (Hospitalization)
  Sender: FDA-Public Use
  Company Number: US-2005-011230

PATIENT
  Age: 60 Year
  Sex: Male

DRUGS (4)
  1. BETASERON [Suspect]
     Indication: MULTIPLE SCLEROSIS
     Dosage: 8 MIU, EVERY 2D, SUBCUTANEOUS
     Route: 058
     Dates: start: 20000101, end: 20050618
  2. BETASERON [Suspect]
     Indication: MULTIPLE SCLEROSIS
     Dosage: 8 MIU, EVERY 2D, SUBCUTANEOUS
     Route: 058
     Dates: start: 20050621
  3. WELLBUTRIN [Concomitant]
  4. UROXATRAL [Concomitant]

REACTIONS (4)
  - DRUG INEFFECTIVE [None]
  - LARGE INTESTINAL OBSTRUCTION [None]
  - THERAPY NON-RESPONDER [None]
  - URINARY RETENTION [None]
